FAERS Safety Report 26132416 (Version 1)
Quarter: 2025Q4

REPORT INFORMATION
  Report Type: Spontaneous
  Country: CN (occurrence: CN)
  Receive Date: 20251208
  Receipt Date: 20251208
  Transmission Date: 20260118
  Serious: Yes (Hospitalization)
  Sender: PURDUE
  Company Number: CN-NAPPMUNDI-GBR-2025-0131125

PATIENT
  Sex: Female

DRUGS (3)
  1. HYDROMORPHONE HYDROCHLORIDE [Suspect]
     Active Substance: HYDROMORPHONE HYDROCHLORIDE
     Indication: Procedural pain
     Dosage: 0.1% ROPIVACAINE COMBINED WITH 16 MCG/ML HYDROMORPHONE, ADMINISTERED AT A BASAL INFUSION RATE OF 5
     Route: 065
  2. HYDROMORPHONE HYDROCHLORIDE [Suspect]
     Active Substance: HYDROMORPHONE HYDROCHLORIDE
     Indication: Procedural pain
     Dosage: 0.1% ROPIVACAINE COMBINED WITH 16 MCG/ML HYDROMORPHONE, ADMINISTERED AT A BASAL INFUSION RATE OF 5 M
     Route: 065
  3. ROPIVACAINE [Suspect]
     Active Substance: ROPIVACAINE
     Indication: Spinal anaesthesia
     Dosage: 0.1% ROPIVACAINE COMBINED WITH 16 MCG/ML HYDROMORPHONE, ADMINISTERED AT A BASAL INFUSION RATE OF 5
     Route: 038

REACTIONS (5)
  - Hypoaesthesia [Unknown]
  - Motor dysfunction [Unknown]
  - Nausea [Unknown]
  - Vomiting [Unknown]
  - Pruritus [Unknown]
